FAERS Safety Report 5372366-X (Version None)
Quarter: 2007Q2

REPORT INFORMATION
  Report Type: 
  Country: None (occurrence: None)
  Receive Date: 20070627
  Receipt Date: 20070620
  Transmission Date: 20071010
  Serious: Yes (Hospitalization, Other)
  Sender: FDA-Public Use
  Company Number: JP-BRISTOL-MYERS SQUIBB COMPANY-13686100

PATIENT
  Age: 34 Year
  Sex: Female

DRUGS (5)
  1. ABILIFY [Suspect]
     Indication: SCHIZOPHRENIA
     Dosage: DOSE INCREASED TO 12 MG DAILY ON 01-NOV-2006.
     Route: 048
     Dates: start: 20060726
  2. FLUNITRAZEPAM [Suspect]
     Indication: INSOMNIA
     Route: 048
     Dates: start: 20060703
  3. LORAZEPAM [Concomitant]
     Indication: SCHIZOPHRENIA
     Route: 048
     Dates: start: 20060712, end: 20070222
  4. COLD REMEDY [Concomitant]
     Indication: NASOPHARYNGITIS
     Route: 048
     Dates: start: 20070113, end: 20070117
  5. HERBAL MIXTURE [Concomitant]
     Indication: VOMITING IN PREGNANCY
     Route: 048
     Dates: start: 20070206

REACTIONS (2)
  - ABORTION [None]
  - PREGNANCY [None]
